FAERS Safety Report 7133487-4 (Version None)
Quarter: 2010Q4

REPORT INFORMATION
  Report Type: 
  Country: None (occurrence: None)
  Receive Date: 20101202
  Receipt Date: 20101130
  Transmission Date: 20110411
  Serious: Yes (Other)
  Sender: FDA-Public Use
  Company Number: JP-PFIZER INC-2010134100

PATIENT
  Age: 80 Year
  Sex: Male
  Weight: 67.7 kg

DRUGS (9)
  1. ZYVOX [Suspect]
     Indication: STAPHYLOCOCCAL INFECTION
     Dosage: 600 MG, 2X/DAY
     Route: 048
     Dates: start: 20101015, end: 20101103
  2. CLARITHROMYCIN [Concomitant]
     Dosage: 200 MG, 2X/DAY
     Route: 048
  3. MUCODYNE [Concomitant]
     Dosage: 500 MG, 3X/DAY
     Route: 048
  4. HUSTAZOL [Concomitant]
     Dosage: 20 MG, 3X/DAY
     Route: 048
  5. URSO 250 [Concomitant]
     Dosage: 100 MG, 2X/DAY
     Route: 048
  6. THEO-DUR [Concomitant]
     Dosage: 100 MG, 2X/DAY
     Route: 048
  7. ITOROL [Concomitant]
     Dosage: 20 MG, 1X/DAY
     Route: 048
  8. GASTER [Concomitant]
     Dosage: 20 MG, 1X/DAY
     Route: 048
  9. MAGMITT [Concomitant]
     Dosage: 250 MG, 3X/DAY
     Route: 048

REACTIONS (5)
  - DELIRIUM [None]
  - HALLUCINATION [None]
  - IRRITABILITY [None]
  - NAUSEA [None]
  - VOMITING [None]
